FAERS Safety Report 26208746 (Version 1)
Quarter: 2025Q4

REPORT INFORMATION
  Report Type: Spontaneous
  Country: US (occurrence: US)
  Receive Date: 20251229
  Receipt Date: 20251229
  Transmission Date: 20260118
  Serious: Yes (Other)
  Sender: MYLAN
  Company Number: US-MYLANLABS-2025M1109166

PATIENT
  Age: 38 Year
  Sex: Female

DRUGS (6)
  1. PROPRANOLOL [Suspect]
     Active Substance: PROPRANOLOL HYDROCHLORIDE
     Indication: Graves^ disease
     Dosage: 10 MILLIGRAM
  2. METHIMAZOLE [Suspect]
     Active Substance: METHIMAZOLE
     Indication: Graves^ disease
     Dosage: 20 MILLIGRAM
  3. METHIMAZOLE [Suspect]
     Active Substance: METHIMAZOLE
     Dosage: 30 MILLIGRAM
  4. METHIMAZOLE [Suspect]
     Active Substance: METHIMAZOLE
     Dosage: 40 MILLIGRAM
  5. METHIMAZOLE [Suspect]
     Active Substance: METHIMAZOLE
     Dosage: 50 MILLIGRAM
  6. METHIMAZOLE [Suspect]
     Active Substance: METHIMAZOLE
     Dosage: 60 MILLIGRAM, QD

REACTIONS (3)
  - Drug ineffective [Unknown]
  - Maternal exposure during pregnancy [Unknown]
  - Product prescribing issue [Unknown]
